FAERS Safety Report 9292055 (Version 2)
Quarter: 2013Q3

REPORT INFORMATION
  Report Type: Spontaneous
  Country: US (occurrence: US)
  Receive Date: 20130516
  Receipt Date: 20130823
  Transmission Date: 20140515
  Serious: No
  Sender: FDA-Public Use
  Company Number: US-BIOGENIDEC-2013BI041457

PATIENT
  Age: 58 Year
  Sex: Female

DRUGS (7)
  1. AVONEX [Suspect]
     Indication: MULTIPLE SCLEROSIS
     Route: 030
     Dates: start: 20130219, end: 20130219
  2. AVONEX [Suspect]
     Indication: MULTIPLE SCLEROSIS
     Route: 030
     Dates: start: 20130226, end: 20130226
  3. AVONEX [Suspect]
     Indication: MULTIPLE SCLEROSIS
     Route: 030
     Dates: start: 20130305, end: 20130305
  4. AVONEX [Suspect]
     Indication: MULTIPLE SCLEROSIS
     Route: 030
     Dates: start: 20130312
  5. AMPYRA [Concomitant]
     Indication: GAIT DISTURBANCE
  6. PREDNISONE [Concomitant]
     Indication: PREMEDICATION
     Dates: start: 2013
  7. ALEVE [Concomitant]
     Indication: PREMEDICATION
     Dates: start: 2013

REACTIONS (12)
  - Migraine [Not Recovered/Not Resolved]
  - Peroneal nerve palsy [Recovered/Resolved]
  - Central nervous system lesion [Unknown]
  - Mobility decreased [Recovered/Resolved]
  - Gait disturbance [Recovered/Resolved]
  - Herpes zoster [Not Recovered/Not Resolved]
  - Nerve injury [Not Recovered/Not Resolved]
  - Pyrexia [Recovered/Resolved]
  - Chills [Recovered/Resolved]
  - Influenza like illness [Recovered/Resolved]
  - Rash [Not Recovered/Not Resolved]
  - Pruritus [Not Recovered/Not Resolved]
